FAERS Safety Report 15977601 (Version 1)
Quarter: 2019Q1

REPORT INFORMATION
  Report Type: Spontaneous
  Country: US (occurrence: US)
  Receive Date: 20190218
  Receipt Date: 20190218
  Transmission Date: 20190418
  Serious: Yes (Other)
  Sender: FDA-Public Use
  Company Number: US-ELI_LILLY_AND_COMPANY-US201902005153

PATIENT
  Age: 90 Year
  Sex: Male

DRUGS (2)
  1. NOVOLOG [Concomitant]
     Active Substance: INSULIN ASPART
     Indication: PRODUCT USED FOR UNKNOWN INDICATION
  2. TRULICITY [Suspect]
     Active Substance: DULAGLUTIDE
     Indication: PRODUCT USED FOR UNKNOWN INDICATION
     Dosage: UNK, UNKNOWN
     Route: 065
     Dates: start: 201901

REACTIONS (7)
  - Asthenia [Unknown]
  - Condition aggravated [Unknown]
  - Loss of consciousness [Unknown]
  - Speech disorder [Unknown]
  - Blood glucose increased [Unknown]
  - Loss of consciousness [Unknown]
  - Drug ineffective [Unknown]

NARRATIVE: CASE EVENT DATE: 201901
